FAERS Safety Report 8294074-8 (Version None)
Quarter: 2012Q2

REPORT INFORMATION
  Report Type: 
  Country: None (occurrence: None)
  Receive Date: 20120418
  Receipt Date: 20120411
  Transmission Date: 20120825
  Serious: Yes (Hospitalization)
  Sender: FDA-Public Use
  Company Number: DE-UCBSA-055273

PATIENT
  Age: 39 Year
  Sex: Female
  Weight: 57 kg

DRUGS (3)
  1. VIMPAT [Suspect]
     Indication: EPILEPSY
  2. VIMPAT [Suspect]
     Dosage: 50 MG + 100 MG
  3. CARBAMAZEPIN 1A [Concomitant]
     Indication: EPILEPSY

REACTIONS (1)
  - FRONTAL LOBE EPILEPSY [None]
